FAERS Safety Report 9812570 (Version 2)
Quarter: 2014Q1

REPORT INFORMATION
  Report Type: Report from Study
  Country: US (occurrence: US)
  Receive Date: 20140113
  Receipt Date: 20140122
  Transmission Date: 20141002
  Serious: Yes (Other)
  Sender: FDA-Public Use
  Company Number: US-ROCHE-1332459

PATIENT
  Age: 63 Year
  Sex: Male

DRUGS (5)
  1. ALTEPLASE [Suspect]
     Indication: INTRAVASCULAR HAEMOLYSIS
     Dosage: 1 IN 1 ONCE
     Route: 042
  2. ASPIRIN [Suspect]
     Indication: INTRAVASCULAR HAEMOLYSIS
     Route: 065
  3. ASPIRIN [Suspect]
     Route: 065
  4. HEPARIN [Suspect]
     Indication: INTRAVASCULAR HAEMOLYSIS
     Dosage: 19 DAYS
     Route: 065
  5. WARFARIN [Suspect]
     Indication: INTRAVASCULAR HAEMOLYSIS
     Dosage: INR GOAL WAS (1.5 TO 2.5)
     Route: 065

REACTIONS (3)
  - Embolic stroke [Not Recovered/Not Resolved]
  - Renal impairment [Not Recovered/Not Resolved]
  - Aphasia [Unknown]
